FAERS Safety Report 5553801-0 (Version None)
Quarter: 2007Q4

REPORT INFORMATION
  Report Type: 
  Country: None (occurrence: None)
  Receive Date: 20071213
  Receipt Date: 20071205
  Transmission Date: 20080405
  Serious: Yes (Hospitalization)
  Sender: FDA-Public Use
  Company Number: US-ELI_LILLY_AND_COMPANY-US200708002523

PATIENT
  Sex: Female
  Weight: 115.65 kg

DRUGS (19)
  1. BYETTA [Suspect]
     Dosage: 5 UG, 2/D
     Route: 058
     Dates: start: 20061001
  2. BYETTA [Suspect]
     Dosage: 5 UG, 2/D
     Route: 065
     Dates: start: 20070313, end: 20070413
  3. BYETTA [Suspect]
     Dosage: 10 UG, 2/D
     Route: 065
     Dates: start: 20070413, end: 20070701
  4. TENORMIN [Concomitant]
     Indication: HYPERTENSION
     Dosage: UNK, UNKNOWN
     Route: 048
  5. LISINOPRIL [Concomitant]
     Indication: HYPERTENSION
     Dosage: UNK, UNKNOWN
     Route: 048
  6. PREVACID [Concomitant]
     Indication: DYSPEPSIA
     Dosage: UNK, UNKNOWN
     Route: 048
  7. XALATAN [Concomitant]
     Indication: GLAUCOMA
     Dosage: UNK, UNKNOWN
     Route: 047
  8. ATIVAN [Concomitant]
     Indication: ANXIETY
     Dosage: UNK, UNKNOWN
     Route: 048
  9. FLOVENT [Concomitant]
     Dosage: UNK, UNKNOWN
  10. QUESTRAN LIGHT [Concomitant]
     Indication: IRRITABLE BOWEL SYNDROME
     Dosage: UNK, UNKNOWN
  11. DIFLUCAN [Concomitant]
     Indication: FUNGAL INFECTION
     Dosage: UNK, AS NEEDED
  12. COMPAZINE [Concomitant]
     Indication: NAUSEA
     Dosage: UNK, UNKNOWN
     Route: 048
  13. VITAMIN E [Concomitant]
     Dosage: UNK, UNKNOWN
     Route: 048
  14. ALLEGRA [Concomitant]
     Indication: MULTIPLE ALLERGIES
     Dosage: UNK, UNKNOWN
     Route: 048
  15. LUNESTA [Concomitant]
     Indication: INSOMNIA
     Dosage: UNK, UNKNOWN
     Route: 048
  16. XANAX [Concomitant]
  17. SYNTHROID [Concomitant]
  18. BENTYL [Concomitant]
  19. SOMA [Concomitant]

REACTIONS (5)
  - ABDOMINAL PAIN UPPER [None]
  - DYSPEPSIA [None]
  - PANCREATITIS [None]
  - VOMITING [None]
  - WEIGHT DECREASED [None]
